FAERS Safety Report 6954604-2 (Version None)
Quarter: 2010Q3

REPORT INFORMATION
  Report Type: 
  Country: None (occurrence: None)
  Receive Date: 20100829
  Receipt Date: 20100726
  Transmission Date: 20110219
  Serious: No
  Sender: FDA-Public Use
  Company Number: US-ABBOTT-10P-163-0661289-00

PATIENT
  Age: 68 Year
  Sex: Female
  Weight: 69.008 kg

DRUGS (5)
  1. NIASPAN [Suspect]
     Indication: HIGH DENSITY LIPOPROTEIN DECREASED
     Dosage: AT HOUR OF SLEEP
     Route: 048
     Dates: start: 20090101, end: 20090101
  2. NIASPAN [Suspect]
     Indication: BLOOD TRIGLYCERIDES INCREASED
     Dosage: AT HOUR OF SLEEP
     Route: 048
     Dates: start: 20100601
  3. ASPIRIN [Concomitant]
     Indication: PRODUCT USED FOR UNKNOWN INDICATION
     Dosage: AT HOUR OF SLEEP
     Route: 048
  4. ZOCOR [Concomitant]
     Indication: PRODUCT USED FOR UNKNOWN INDICATION
  5. UNKNOWN BLOOD PRESSURE MEDICATIONS [Concomitant]
     Indication: HYPERTENSION
     Dosage: TAKES 3 UNKNOWN BLOOD PRESSURE PILLS

REACTIONS (4)
  - FLUSHING [None]
  - ILL-DEFINED DISORDER [None]
  - INSOMNIA [None]
  - PRURITUS [None]
